FAERS Safety Report 8573572-3 (Version None)
Quarter: 2012Q2

REPORT INFORMATION
  Report Type: 
  Country: None (occurrence: None)
  Receive Date: 20120423
  Receipt Date: 20100526
  Transmission Date: 20120825
  Serious: Yes (Other)
  Sender: FDA-Public Use
  Company Number: PHHY2010US25700

PATIENT
  Sex: Female
  Weight: 39.5 kg

DRUGS (5)
  1. EVISTA [Concomitant]
  2. EXJADE [Suspect]
     Indication: IRON OVERLOAD
     Dosage: 750 MG DAILY, ORAL
     Route: 048
     Dates: start: 20090918
  3. EXJADE [Suspect]
     Indication: HAEMATOPOIETIC NEOPLASM
     Dosage: 750 MG DAILY, ORAL
     Route: 048
     Dates: start: 20090918
  4. EXJADE [Suspect]
     Indication: LYMPHATIC SYSTEM NEOPLASM
     Dosage: 750 MG DAILY, ORAL
     Route: 048
     Dates: start: 20090918
  5. FOLIC ACID [Concomitant]

REACTIONS (2)
  - TINNITUS [None]
  - DEAFNESS [None]
